FAERS Safety Report 9025440 (Version 2)
Quarter: 2013Q2

REPORT INFORMATION
  Report Type: Spontaneous
  Country: DE (occurrence: DE)
  Receive Date: 20130122
  Receipt Date: 20130419
  Transmission Date: 20140414
  Serious: Yes (Other)
  Sender: FDA-Public Use
  Company Number: DE-B.I. PHARMACEUTICALS,INC./RIDGEFIELD-2013-DE-00137DE

PATIENT
  Age: 65 Year
  Sex: Male
  Weight: 90 kg

DRUGS (4)
  1. PRADAXA [Suspect]
     Indication: ARRHYTHMIA SUPRAVENTRICULAR
     Dosage: 300 NR
     Route: 048
     Dates: start: 201207, end: 201301
  2. AMIODARON 200-1 A PHARMA [Suspect]
     Indication: ARRHYTHMIA SUPRAVENTRICULAR
     Dosage: 400 NR
     Route: 048
     Dates: start: 201207, end: 201301
  3. BELOC ZOK MITE [Concomitant]
     Indication: HYPERTENSION
     Route: 048
     Dates: start: 2011
  4. TORASEMID 10 [Concomitant]
     Route: 048
     Dates: start: 201210

REACTIONS (1)
  - Transaminases increased [Not Recovered/Not Resolved]
